FAERS Safety Report 6013804-9 (Version None)
Quarter: 2008Q4

REPORT INFORMATION
  Report Type: 
  Country: None (occurrence: None)
  Receive Date: 20081219
  Receipt Date: 20081208
  Transmission Date: 20090506
  Serious: Yes (Other)
  Sender: FDA-Public Use
  Company Number: JP-PFIZER INC-2008100322

PATIENT

DRUGS (3)
  1. GABAPEN [Suspect]
     Route: 048
  2. EXCEGRAN [Concomitant]
  3. TEGRETOL [Concomitant]

REACTIONS (1)
  - CONVULSION [None]
